FAERS Safety Report 23361927 (Version 1)
Quarter: 2024Q1

REPORT INFORMATION
  Report Type: Spontaneous
  Country: US (occurrence: US)
  Receive Date: 20240103
  Receipt Date: 20240103
  Transmission Date: 20240410
  Serious: Yes (Other)
  Sender: FDA-Public Use
  Company Number: US-BAYER-2024A000967

PATIENT
  Age: 49 Year
  Sex: Female

DRUGS (1)
  1. ALEVE [Suspect]
     Active Substance: NAPROXEN SODIUM
     Indication: Pain
     Dosage: 2 TABLETS ONCE
     Route: 048

REACTIONS (2)
  - Haematochezia [Recovering/Resolving]
  - Faeces discoloured [Recovering/Resolving]
